FAERS Safety Report 17876028 (Version 2)
Quarter: 2020Q2

REPORT INFORMATION
  Report Type: Spontaneous
  Country: GB (occurrence: GB)
  Receive Date: 20200609
  Receipt Date: 20200616
  Transmission Date: 20200714
  Serious: Yes (Disabling)
  Sender: FDA-Public Use
  Company Number: GB-SA-2020SA145727

PATIENT

DRUGS (6)
  1. TAMSULOSIN HYDROCHLORIDE. [Suspect]
     Active Substance: TAMSULOSIN HYDROCHLORIDE
     Indication: NEPHROLITHIASIS
     Dosage: UNK
     Route: 048
     Dates: start: 20200518, end: 20200518
  2. DOXYCYCLINE HYDROCHLORIDE [Concomitant]
     Active Substance: DOXYCYCLINE HYDROCHLORIDE
     Dosage: UNK
  3. PREDNISOLONE. [Concomitant]
     Active Substance: PREDNISOLONE
     Dosage: UNK
  4. NITROFURANTOIN. [Concomitant]
     Active Substance: NITROFURANTOIN
     Dosage: UNK
  5. CLARITHROMYCIN. [Concomitant]
     Active Substance: CLARITHROMYCIN
     Dosage: UNK
  6. TETRACYCLINE [Concomitant]
     Active Substance: TETRACYCLINE
     Dosage: UNK

REACTIONS (8)
  - Pyrexia [Unknown]
  - Periorbital pain [Recovering/Resolving]
  - Product use in unapproved indication [Unknown]
  - Facial pain [Unknown]
  - Nasal congestion [Unknown]
  - Photophobia [Recovering/Resolving]
  - Sinus pain [Unknown]
  - Headache [Unknown]

NARRATIVE: CASE EVENT DATE: 20200518
